FAERS Safety Report 4916566-9 (Version None)
Quarter: 2006Q1

REPORT INFORMATION
  Report Type: 
  Country: None (occurrence: None)
  Receive Date: 20060216
  Receipt Date: 20060216
  Transmission Date: 20060701
  Serious: Yes (Other)
  Sender: FDA-Public Use
  Company Number: None

PATIENT
  Sex: Male

DRUGS (10)
  1. DULOXETINE 60 MG [Suspect]
     Indication: DIABETIC NEUROPATHY
     Dosage: 60 MG DAILY PO
     Route: 048
  2. FEXOFENADINE HCL [Concomitant]
  3. FLURIBPROFEN OPHTHALMIC [Concomitant]
  4. GABAPENTIN [Concomitant]
  5. LACTULOSE [Concomitant]
  6. METFORMIN HCL [Concomitant]
  7. PREDNISOLONE OPHTHALMIC [Concomitant]
  8. PSYLLIUM [Concomitant]
  9. RESOURCE DIABETIC [Concomitant]
  10. LIDOCAINE [Concomitant]

REACTIONS (3)
  - DIARRHOEA [None]
  - MUSCLE TIGHTNESS [None]
  - MUSCULOSKELETAL CHEST PAIN [None]
